FAERS Safety Report 17293284 (Version 1)
Quarter: 2020Q1

REPORT INFORMATION
  Report Type: Spontaneous
  Country: US (occurrence: US)
  Receive Date: 20200119
  Receipt Date: 20200119
  Transmission Date: 20200409
  Serious: No
  Sender: FDA-Public Use
  Company Number: None

PATIENT
  Age: 50 Year
  Sex: Female
  Weight: 75.6 kg

DRUGS (9)
  1. AFINITOR [Concomitant]
     Active Substance: EVEROLIMUS
  2. MORPHINE [Concomitant]
     Active Substance: MORPHINE
  3. EVEROLIMUS. [Suspect]
     Active Substance: EVEROLIMUS
     Indication: BREAST CANCER STAGE IV
     Dosage: ?          QUANTITY:1 TABLET(S);?
     Route: 048
  4. FULVESTRANT. [Concomitant]
     Active Substance: FULVESTRANT
  5. DULOXETINE. [Concomitant]
     Active Substance: DULOXETINE
  6. LANTUS [Concomitant]
     Active Substance: INSULIN GLARGINE
  7. IBUPROFEN. [Concomitant]
     Active Substance: IBUPROFEN
  8. XGEVA [Concomitant]
     Active Substance: DENOSUMAB
  9. INSULIN [Concomitant]
     Active Substance: INSULIN NOS

REACTIONS (3)
  - Cheilitis [None]
  - Purulent discharge [None]
  - Mucosal inflammation [None]

NARRATIVE: CASE EVENT DATE: 20190717
